FAERS Safety Report 14194747 (Version 1)
Quarter: 2017Q4

REPORT INFORMATION
  Report Type: Spontaneous
  Country: US (occurrence: US)
  Receive Date: 20171116
  Receipt Date: 20171116
  Transmission Date: 20180321
  Serious: No
  Sender: FDA-Public Use
  Company Number: US-009507513-1702USA008143

PATIENT
  Age: 55 Year
  Sex: Male

DRUGS (3)
  1. SOFOSBUVIR [Suspect]
     Active Substance: SOFOSBUVIR
     Indication: PROPHYLAXIS
     Dosage: 400 MG DAILY
  2. REBETOL [Suspect]
     Active Substance: RIBAVIRIN
     Dosage: 200 MG 3 TIMES DAILY
     Route: 048
  3. REBETOL [Suspect]
     Active Substance: RIBAVIRIN
     Indication: PROPHYLAXIS
     Dosage: 600 MG TWICE DAILY
     Route: 048

REACTIONS (2)
  - Anaemia [Unknown]
  - Product use issue [Unknown]
